FAERS Safety Report 16912611 (Version 1)
Quarter: 2019Q4

REPORT INFORMATION
  Report Type: Spontaneous
  Country: GB (occurrence: GB)
  Receive Date: 20191014
  Receipt Date: 20191014
  Transmission Date: 20200122
  Serious: Yes (Other)
  Sender: FDA-Public Use
  Company Number: GB-TEVA-2019-GB-1120671

PATIENT
  Age: 70 Year
  Sex: Female
  Weight: 50 kg

DRUGS (7)
  1. CREON [Concomitant]
     Active Substance: PANCRELIPASE AMYLASE\PANCRELIPASE LIPASE\PANCRELIPASE PROTEASE
     Dosage: TWO CAPSULES THREE TIMES DAILY AND ONE CAPSULE ...
     Dates: start: 20190224
  2. DOXYCYCLINE. [Concomitant]
     Active Substance: DOXYCYCLINE
     Dosage: FOR 7 DAYS
     Dates: start: 20190829, end: 20190905
  3. ALENDRONIC ACID [Concomitant]
     Active Substance: ALENDRONIC ACID
     Dates: start: 20190224
  4. TIMOPTOL [Concomitant]
     Active Substance: TIMOLOL
     Route: 047
     Dates: start: 20190224
  5. ADCAL [Concomitant]
     Dates: start: 20190224
  6. METRONIDAZOLE. [Suspect]
     Active Substance: METRONIDAZOLE
     Dosage: FOR 7 DAYS
     Dates: start: 20190902, end: 20190909
  7. GLYCERYL TRINITRATE [Concomitant]
     Active Substance: NITROGLYCERIN
     Dosage: APPLY (REMOVE OVER NIGHT)
     Dates: start: 20190224, end: 20190711

REACTIONS (2)
  - Tremor [Recovered/Resolved]
  - Contusion [Recovering/Resolving]

NARRATIVE: CASE EVENT DATE: 20190909
